FAERS Safety Report 5895989-8 (Version None)
Quarter: 2008Q3

REPORT INFORMATION
  Report Type: 
  Country: None (occurrence: None)
  Receive Date: 20080828
  Receipt Date: 20080414
  Transmission Date: 20090109
  Serious: Yes (Hospitalization)
  Sender: FDA-Public Use
  Company Number: 168811USA

PATIENT
  Sex: Male

DRUGS (2)
  1. METOCLOPRAMIDE [Suspect]
     Indication: GASTRIC ULCER HAEMORRHAGE
     Dosage: (10 MG),ORAL
     Route: 048
     Dates: start: 20080216, end: 20080312
  2. LORAZEPAM [Concomitant]

REACTIONS (1)
  - MUSCLE TWITCHING [None]
